FAERS Safety Report 18598678 (Version 2)
Quarter: 2020Q4

REPORT INFORMATION
  Report Type: Spontaneous
  Country: IE (occurrence: IE)
  Receive Date: 20201210
  Receipt Date: 20201210
  Transmission Date: 20210114
  Serious: Yes (Hospitalization)
  Sender: FDA-Public Use
  Company Number: IE-BAXTER-2020BAX023292

PATIENT
  Age: 76 Year
  Sex: Male
  Weight: 67 kg

DRUGS (10)
  1. PACLITAXEL. [Suspect]
     Active Substance: PACLITAXEL
     Indication: NON-SMALL CELL LUNG CANCER RECURRENT
     Dosage: 135 MG/M2
     Route: 042
     Dates: start: 20200609, end: 20200630
  2. VINCRISTINE [Suspect]
     Active Substance: VINCRISTINE
     Route: 065
     Dates: start: 20200720, end: 20200825
  3. DOXIL [Suspect]
     Active Substance: DOXORUBICIN HYDROCHLORIDE
     Route: 065
     Dates: start: 20200720, end: 20200825
  4. CYTOSINE ARABINOSIDE [Suspect]
     Active Substance: CYTARABINE
     Indication: NON-SMALL CELL LUNG CANCER RECURRENT
     Route: 065
     Dates: start: 20200609, end: 20200630
  5. SODIUM CHLORIDE 0.9% INTRAVENOUS INFUSION BP [Suspect]
     Active Substance: SODIUM CHLORIDE
     Indication: MEDICATION DILUTION
     Route: 042
     Dates: start: 20200609, end: 20200630
  6. CARBOPLATIN. [Suspect]
     Active Substance: CARBOPLATIN
     Indication: NON-SMALL CELL LUNG CANCER RECURRENT
     Route: 065
     Dates: start: 20200609, end: 20200630
  7. CYTOSINE ARABINOSIDE [Suspect]
     Active Substance: CYTARABINE
     Route: 065
     Dates: start: 20200720, end: 20200825
  8. DOXIL [Suspect]
     Active Substance: DOXORUBICIN HYDROCHLORIDE
     Indication: NON-SMALL CELL LUNG CANCER RECURRENT
     Route: 065
     Dates: start: 20200609, end: 20200630
  9. CARBOPLATIN. [Suspect]
     Active Substance: CARBOPLATIN
     Route: 065
     Dates: start: 20200720, end: 20200825
  10. VINCRISTINE [Suspect]
     Active Substance: VINCRISTINE
     Indication: NON-SMALL CELL LUNG CANCER RECURRENT
     Route: 065
     Dates: start: 20200609, end: 20200630

REACTIONS (1)
  - Presyncope [Recovered/Resolved]

NARRATIVE: CASE EVENT DATE: 20200630
